FAERS Safety Report 4761205-3 (Version None)
Quarter: 2005Q3

REPORT INFORMATION
  Report Type: 
  Country: None (occurrence: None)
  Receive Date: 20050901
  Receipt Date: 20050901
  Transmission Date: 20060218
  Serious: Yes (Other)
  Sender: FDA-Public Use
  Company Number: None

PATIENT
  Age: 19 Year
  Sex: Male
  Weight: 63.05 kg

DRUGS (1)
  1. GRISEOFULVIN [Suspect]
     Dosage: 250 MG X 1 ORAL
     Route: 048
     Dates: start: 20050806

REACTIONS (9)
  - BLOOD PRESSURE ORTHOSTATIC ABNORMAL [None]
  - CHEST DISCOMFORT [None]
  - CHEST PAIN [None]
  - DEHYDRATION [None]
  - DIZZINESS [None]
  - DYSPNOEA [None]
  - HYPERHIDROSIS [None]
  - PARAESTHESIA [None]
  - PULSE ABNORMAL [None]
